FAERS Safety Report 12565592 (Version 1)
Quarter: 2016Q3

REPORT INFORMATION
  Report Type: Spontaneous
  Country: US (occurrence: US)
  Receive Date: 20160718
  Receipt Date: 20160718
  Transmission Date: 20161109
  Serious: No
  Sender: FDA-Public Use
  Company Number: US-BAUSCH-BL-2015-015131

PATIENT
  Sex: Female

DRUGS (2)
  1. BESIVANCE [Suspect]
     Active Substance: BESIFLOXACIN
     Indication: CATARACT OPERATION
     Route: 065
     Dates: start: 2015
  2. PREDNISOLONE. [Suspect]
     Active Substance: PREDNISOLONE
     Indication: CATARACT OPERATION
     Route: 065

REACTIONS (3)
  - Pain [Unknown]
  - Off label use [Unknown]
  - Burning sensation [Unknown]
